FAERS Safety Report 6346883-X (Version None)
Quarter: 2009Q3

REPORT INFORMATION
  Report Type: 
  Country: None (occurrence: None)
  Receive Date: 20090909
  Receipt Date: 20090909
  Transmission Date: 20100115
  Serious: Yes (Other)
  Sender: FDA-Public Use
  Company Number: None

PATIENT
  Sex: Female
  Weight: 65.7716 kg

DRUGS (5)
  1. DANAZOL [Suspect]
     Indication: PREMENSTRUAL SYNDROME
     Dosage: 50 MG TWICE DAILY AS NEEDED FOR PMS PO
     Route: 048
     Dates: start: 20080410, end: 20090609
  2. DANAZOL [Suspect]
     Indication: PREMENSTRUAL SYNDROME
     Dosage: OR 100 MG TWICE DAILY AS NEEDED FOR PMS PO
     Route: 048
  3. BUPROPION HCL [Concomitant]
  4. LEVOTHYROXINE SODIUM [Concomitant]
  5. MULTI-VITAMIN [Concomitant]

REACTIONS (13)
  - ARRHYTHMIA [None]
  - CLAUSTROPHOBIA [None]
  - EMOTIONAL DISORDER [None]
  - FEAR [None]
  - LIBIDO INCREASED [None]
  - OBSESSIVE THOUGHTS [None]
  - OBSESSIVE-COMPULSIVE DISORDER [None]
  - PANIC ATTACK [None]
  - PARANOIA [None]
  - SUICIDAL IDEATION [None]
  - TACHYPHRENIA [None]
  - THINKING ABNORMAL [None]
  - TINNITUS [None]
